FAERS Safety Report 19999813 (Version 2)
Quarter: 2021Q4

REPORT INFORMATION
  Report Type: Spontaneous
  Country: FR (occurrence: FR)
  Receive Date: 20211026
  Receipt Date: 20211204
  Transmission Date: 20220303
  Serious: Yes (Death, Other)
  Sender: FDA-Public Use
  Company Number: FR-UCBSA-2021049857

PATIENT

DRUGS (1)
  1. CIMZIA [Suspect]
     Active Substance: CERTOLIZUMAB PEGOL
     Indication: Psoriasis
     Dosage: UNK

REACTIONS (70)
  - Death [Fatal]
  - Infection [Unknown]
  - Cholangitis [Unknown]
  - Diverticulum [Unknown]
  - Enteritis infectious [Unknown]
  - Hepatitis viral [Unknown]
  - Liver abscess [Unknown]
  - Gastrointestinal infection [Unknown]
  - Cellulitis [Unknown]
  - Abscess [Unknown]
  - Erysipelas [Unknown]
  - Herpes virus infection [Unknown]
  - Dermatophytosis [Unknown]
  - Fungal infection [Unknown]
  - Skin infection [Unknown]
  - Oral infection [Unknown]
  - Pneumonia [Unknown]
  - Empyema [Unknown]
  - Lung abscess [Unknown]
  - Lower respiratory tract infection [Unknown]
  - Nephritis [Unknown]
  - Prostatitis [Unknown]
  - Prostate infection [Unknown]
  - Orchitis [Unknown]
  - Epididymitis [Unknown]
  - Salpingitis [Unknown]
  - Oophoritis [Unknown]
  - Cystitis [Unknown]
  - Cervicitis [Unknown]
  - Endometritis [Unknown]
  - Syphilis [Unknown]
  - Chlamydial infection [Unknown]
  - Urinary tract infection [Unknown]
  - Sinusitis [Unknown]
  - Parapharyngeal space infection [Unknown]
  - Pharyngeal abscess [Unknown]
  - Otitis externa [Unknown]
  - Otitis media acute [Unknown]
  - Pharyngitis [Unknown]
  - Tonsillitis [Unknown]
  - Mastoiditis [Unknown]
  - Laryngitis [Unknown]
  - Tracheitis [Unknown]
  - Rhinitis [Unknown]
  - Ear infection [Unknown]
  - Arthritis infective [Unknown]
  - Infective myositis [Unknown]
  - Osteomyelitis [Unknown]
  - Sepsis [Unknown]
  - Systemic inflammatory response syndrome [Unknown]
  - Septic shock [Unknown]
  - Pericarditis infective [Unknown]
  - Endocarditis [Unknown]
  - Device related infection [Unknown]
  - Graft infection [Unknown]
  - Eye infection [Unknown]
  - Spirochaetal infection [Unknown]
  - Cytomegalovirus infection [Unknown]
  - Pneumonia streptococcal [Unknown]
  - Pneumonia legionella [Unknown]
  - Salmonellosis [Unknown]
  - Mycobacterial infection [Unknown]
  - Candida infection [Unknown]
  - Aspergillus infection [Unknown]
  - Histoplasmosis [Unknown]
  - Cryptococcosis [Unknown]
  - Pneumocystis jirovecii pneumonia [Unknown]
  - Leishmaniasis [Unknown]
  - Toxoplasmosis [Unknown]
  - Cryptosporidiosis infection [Unknown]
